FAERS Safety Report 11888807 (Version 1)
Quarter: 2016Q1

REPORT INFORMATION
  Report Type: Spontaneous
  Country: US (occurrence: None)
  Receive Date: 20160104
  Receipt Date: 20160104
  Transmission Date: 20160526
  Serious: Yes (Other)
  Sender: FDA-Public Use
  Company Number: None

PATIENT
  Age: 9 Year

DRUGS (7)
  1. KEPPRA [Concomitant]
     Active Substance: LEVETIRACETAM
  2. METADATE CD [Concomitant]
     Active Substance: METHYLPHENIDATE HYDROCHLORIDE
  3. MVI [Concomitant]
     Active Substance: VITAMINS
  4. FLUTICASONE NASAL SPRAY [Concomitant]
     Active Substance: FLUTICASONE\FLUTICASONE PROPIONATE
  5. B6 [Concomitant]
     Active Substance: PYRIDOXINE HYDROCHLORIDE
  6. ETHOSUXIMIDE. [Suspect]
     Active Substance: ETHOSUXIMIDE
     Indication: PETIT MAL EPILEPSY
     Route: 048
  7. LORATADINE. [Concomitant]
     Active Substance: LORATADINE

REACTIONS (9)
  - Anxiety [None]
  - Hostility [None]
  - Nausea [None]
  - Abdominal discomfort [None]
  - Hallucination, visual [None]
  - Suicidal ideation [None]
  - Hiccups [None]
  - Aggression [None]
  - Somnolence [None]

NARRATIVE: CASE EVENT DATE: 20151214
